FAERS Safety Report 5605202-4 (Version None)
Quarter: 2008Q1

REPORT INFORMATION
  Report Type: 
  Country: None (occurrence: None)
  Receive Date: 20080124
  Receipt Date: 20080110
  Transmission Date: 20080703
  Serious: Yes (Hospitalization, Other)
  Sender: FDA-Public Use
  Company Number: 2007SP024604

PATIENT
  Age: 54 Year
  Sex: Male
  Weight: 87.9978 kg

DRUGS (3)
  1. PEG-INTRON [Suspect]
     Indication: HEPATITIS C
     Dosage: 150 MCG; QW; SC
     Route: 058
     Dates: start: 20071005, end: 20071203
  2. TARIBAVIRIN [Suspect]
     Indication: HEPATITIS C
     Dosage: 2800  MG; QD; 2200 MG; QD
     Dates: start: 20071005, end: 20071127
  3. TARIBAVIRIN [Suspect]
     Indication: HEPATITIS C
     Dosage: 2800  MG; QD; 2200 MG; QD
     Dates: start: 20071128, end: 20071203

REACTIONS (34)
  - ABDOMINAL PAIN [None]
  - ACUTE RESPIRATORY DISTRESS SYNDROME [None]
  - APPENDIX DISORDER [None]
  - CEREBRAL DISORDER [None]
  - CONFUSIONAL STATE [None]
  - CONVULSION [None]
  - DEHYDRATION [None]
  - DELIRIUM [None]
  - DIARRHOEA [None]
  - DISTURBANCE IN ATTENTION [None]
  - ELECTROLYTE IMBALANCE [None]
  - ENCEPHALITIS HERPES [None]
  - FALL [None]
  - HYPOTENSION [None]
  - HYPOXIA [None]
  - INCOHERENT [None]
  - LOBAR PNEUMONIA [None]
  - MEMORY IMPAIRMENT [None]
  - METABOLIC ENCEPHALOPATHY [None]
  - NAUSEA [None]
  - PLEURAL EFFUSION [None]
  - PNEUMONIA [None]
  - PNEUMONIA ASPIRATION [None]
  - PUPILLARY REFLEX IMPAIRED [None]
  - PUPILS UNEQUAL [None]
  - PYREXIA [None]
  - RESPIRATORY ARREST [None]
  - SEPSIS [None]
  - SMALL INTESTINAL OBSTRUCTION [None]
  - TACHYCARDIA [None]
  - TACHYPNOEA [None]
  - TREMOR [None]
  - UNRESPONSIVE TO STIMULI [None]
  - UPPER GASTROINTESTINAL HAEMORRHAGE [None]
